FAERS Safety Report 7596823-0 (Version None)
Quarter: 2011Q3

REPORT INFORMATION
  Report Type: 
  Country: None (occurrence: None)
  Receive Date: 20110708
  Receipt Date: 20110624
  Transmission Date: 20111222
  Serious: Yes (Hospitalization)
  Sender: FDA-Public Use
  Company Number: US-MYLANLABS-2011S1013427

PATIENT
  Age: 48 Year
  Sex: Female

DRUGS (3)
  1. PHENYTOIN [Suspect]
     Route: 065
  2. PHENYTOIN [Suspect]
     Indication: CONVULSION
     Route: 065
  3. AZITHROMYCIN [Interacting]
     Indication: UPPER RESPIRATORY TRACT INFECTION
     Route: 065

REACTIONS (5)
  - TOXICITY TO VARIOUS AGENTS [None]
  - THROMBOCYTOPENIA [None]
  - GAIT DISTURBANCE [None]
  - DRUG INTERACTION [None]
  - MENTAL STATUS CHANGES [None]
